FAERS Safety Report 4531408-1 (Version None)
Quarter: 2004Q4

REPORT INFORMATION
  Report Type: 
  Country: None (occurrence: None)
  Receive Date: 20041216
  Receipt Date: 20041130
  Transmission Date: 20050328
  Serious: Yes (Hospitalization)
  Sender: FDA-Public Use
  Company Number: 207234

PATIENT
  Age: 37 Year
  Sex: Female

DRUGS (7)
  1. AVONEX [Suspect]
     Indication: MULTIPLE SCLEROSIS
     Dosage: 30 UG; QW ; IM
     Route: 030
     Dates: start: 19990101
  2. AVONEX [Suspect]
     Indication: MULTIPLE SCLEROSIS
     Dosage: 30 UG; QW; IM
     Route: 030
  3. INDERAL [Concomitant]
  4. SYNTHROID [Concomitant]
  5. VALTREX [Concomitant]
  6. AMBIEN [Concomitant]
  7. MOTRIN [Concomitant]

REACTIONS (2)
  - INJECTION SITE CELLULITIS [None]
  - INJECTION SITE MASS [None]
